FAERS Safety Report 8561798 (Version 2)
Quarter: 2012Q4

REPORT INFORMATION
  Report Type: 
  Country: US (occurrence: US)
  Receive Date: 20120515
  Receipt Date: 20121004
  Transmission Date: 20130627
  Serious: Yes (Other)
  Sender: FDA-Public Use
  Company Number: US-US-EMD SERONO, INC.-7113341

PATIENT
  Age: 62 Year
  Sex: Female
  Weight: 107 kg

DRUGS (1)
  1. REBIF [Suspect]
     Indication: MULTIPLE SCLEROSIS
     Route: 058
     Dates: start: 20111026, end: 20120413

REACTIONS (7)
  - Renal atrophy [Not Recovered/Not Resolved]
  - Nephrolithiasis [Unknown]
  - Hepatic enzyme increased [Recovered/Resolved]
  - Glycosylated haemoglobin increased [Unknown]
  - Blood pressure increased [Unknown]
  - Influenza like illness [Recovering/Resolving]
  - Injection site erythema [Not Recovered/Not Resolved]
